FAERS Safety Report 10102876 (Version 2)
Quarter: 2014Q2

REPORT INFORMATION
  Report Type: Spontaneous
  Country: US (occurrence: US)
  Receive Date: 20140424
  Receipt Date: 20140424
  Transmission Date: 20141212
  Serious: Yes (Hospitalization)
  Sender: FDA-Public Use
  Company Number: US-BRISTOL-MYERS SQUIBB COMPANY-19967330

PATIENT
  Age: 70 Year
  Sex: Female
  Weight: 81.63 kg

DRUGS (2)
  1. ELIQUIS [Suspect]
     Indication: THROMBOSIS
  2. COUMADIN [Suspect]

REACTIONS (4)
  - Adverse event [Unknown]
  - Skin disorder [Unknown]
  - Dizziness [Unknown]
  - Drug dispensing error [Unknown]
